FAERS Safety Report 23844513 (Version 3)
Quarter: 2024Q3

REPORT INFORMATION
  Report Type: Report from Study
  Country: HN (occurrence: HN)
  Receive Date: 20240510
  Receipt Date: 20240815
  Transmission Date: 20241016
  Serious: No
  Sender: BIOGEN
  Company Number: HN-BIOGEN-2024BI01264463

PATIENT
  Age: 33 Year
  Sex: Female

DRUGS (5)
  1. AVONEX [Suspect]
     Active Substance: INTERFERON BETA-1A
     Indication: Relapsing multiple sclerosis
     Route: 050
     Dates: start: 20190815
  2. AVONEX [Suspect]
     Active Substance: INTERFERON BETA-1A
  3. AVONEX [Suspect]
     Active Substance: INTERFERON BETA-1A
  4. AVONEX [Suspect]
     Active Substance: INTERFERON BETA-1A
  5. GABEX [Concomitant]
     Indication: Product used for unknown indication
     Route: 050
     Dates: start: 202401, end: 2024

REACTIONS (5)
  - Discomfort [Unknown]
  - Pyrexia [Recovered/Resolved]
  - Insomnia [Recovered/Resolved]
  - Pain [Recovered/Resolved]
  - Headache [Recovered/Resolved]

NARRATIVE: CASE EVENT DATE: 20240101
